FAERS Safety Report 10238410 (Version 1)
Quarter: 2014Q2

REPORT INFORMATION
  Report Type: Spontaneous
  Country: US (occurrence: US)
  Receive Date: 20140616
  Receipt Date: 20140616
  Transmission Date: 20141212
  Serious: No
  Sender: FDA-Public Use
  Company Number: US-ASTRAZENECA-2014SE39486

PATIENT
  Age: 65 Year
  Sex: Female
  Weight: 67.1 kg

DRUGS (13)
  1. FASLODEX [Suspect]
     Indication: BREAST CANCER METASTATIC
     Route: 030
     Dates: start: 201311
  2. OMEPRAZOLE [Suspect]
     Indication: GASTROOESOPHAGEAL REFLUX DISEASE
     Dosage: PRN
     Route: 048
  3. OMEPRAZOLE [Suspect]
     Indication: NAUSEA
     Dosage: PRN
     Route: 048
  4. OMEPRAZOLE [Suspect]
     Indication: ABDOMINAL PAIN UPPER
     Dosage: PRN
     Route: 048
  5. CYMBALTA [Suspect]
     Indication: DEPRESSION
     Route: 065
  6. CYMBALTA [Suspect]
     Indication: ANXIETY
     Route: 065
  7. BUSPAR [Suspect]
     Indication: PANIC ATTACK
     Route: 065
     Dates: start: 2014, end: 2014
  8. XGEVA [Concomitant]
     Indication: BONE DISORDER
     Dosage: MONTH
     Route: 058
     Dates: start: 201311
  9. AROMASIN [Concomitant]
     Indication: ANTIOESTROGEN THERAPY
     Dates: start: 2013
  10. AROMASIN [Concomitant]
     Indication: ANTIOESTROGEN THERAPY
  11. GABAPENTIN [Concomitant]
     Indication: NEURALGIA
     Dates: start: 201311
  12. OXYCONTIN TIMED RELEASE [Concomitant]
     Indication: PAIN
     Dosage: 1 PILL Q8-12H
     Dates: start: 201311
  13. LORTAB [Concomitant]
     Indication: PAIN
     Dosage: 10/325 PRN
     Dates: start: 2012

REACTIONS (25)
  - Dyspnoea [Not Recovered/Not Resolved]
  - Bone pain [Not Recovered/Not Resolved]
  - Depression [Not Recovered/Not Resolved]
  - Anxiety [Unknown]
  - Pain in extremity [Unknown]
  - Back pain [Unknown]
  - Panic attack [Recovered/Resolved]
  - Anxiety [Unknown]
  - Musculoskeletal pain [Not Recovered/Not Resolved]
  - Hypoaesthesia [Not Recovered/Not Resolved]
  - Paraesthesia [Not Recovered/Not Resolved]
  - Nervous system disorder [Not Recovered/Not Resolved]
  - Memory impairment [Unknown]
  - Aphagia [Not Recovered/Not Resolved]
  - Gastrooesophageal reflux disease [Not Recovered/Not Resolved]
  - Abdominal pain upper [Not Recovered/Not Resolved]
  - Scar [Unknown]
  - Pain in extremity [Not Recovered/Not Resolved]
  - Arthralgia [Not Recovered/Not Resolved]
  - Hypoaesthesia [Not Recovered/Not Resolved]
  - Vomiting [Recovered/Resolved]
  - Headache [Recovered/Resolved]
  - Nausea [Not Recovered/Not Resolved]
  - Drug administered at inappropriate site [Unknown]
  - Drug ineffective [Unknown]
